FAERS Safety Report 8363114-X (Version None)
Quarter: 2012Q1

REPORT INFORMATION
  Report Type: 
  Country: None (occurrence: None)
  Receive Date: 20120323
  Receipt Date: 20110513
  Transmission Date: 20120608
  Serious: Yes (Other)
  Sender: FDA-Public Use
  Company Number: 163-21880-11052106

PATIENT
  Age: 58 Year
  Sex: Male

DRUGS (2)
  1. REVLIMID [Suspect]
     Indication: MULTIPLE MYELOMA
     Dosage: 10 MG, DAILY FOR 28 DAYS, PO, 10 MG, DAILY FOR 28 DAYS, PO
     Route: 048
     Dates: start: 20100801, end: 20110301
  2. REVLIMID [Suspect]
     Indication: MULTIPLE MYELOMA
     Dosage: 10 MG, DAILY FOR 28 DAYS, PO, 10 MG, DAILY FOR 28 DAYS, PO
     Route: 048
     Dates: start: 20110501

REACTIONS (2)
  - CLOSTRIDIAL INFECTION [None]
  - INFECTION [None]
